FAERS Safety Report 25067300 (Version 3)
Quarter: 2025Q3

REPORT INFORMATION
  Report Type: Spontaneous
  Country: JP (occurrence: JP)
  Receive Date: 20250312
  Receipt Date: 20250901
  Transmission Date: 20251020
  Serious: Yes (Hospitalization)
  Sender: ROCHE
  Company Number: JP-CHUGAI-2025007322

PATIENT
  Age: 67 Year
  Sex: Female
  Weight: 46.7 kg

DRUGS (5)
  1. ACTEMRA [Suspect]
     Active Substance: TOCILIZUMAB
     Indication: Rheumatoid arthritis
     Route: 058
     Dates: start: 20210708, end: 20241107
  2. PREDNISOLONE [Concomitant]
     Active Substance: PREDNISOLONE
     Route: 065
  3. IGURATIMOD [Concomitant]
     Active Substance: IGURATIMOD
     Route: 065
  4. METHOTREXATE [Concomitant]
     Active Substance: METHOTREXATE
     Route: 048
     Dates: start: 20241112
  5. TACROLIMUS [Concomitant]
     Active Substance: TACROLIMUS
     Route: 048

REACTIONS (3)
  - Diverticulitis [Recovered/Resolved]
  - Large intestine perforation [Recovered/Resolved]
  - Colonic abscess [Recovered/Resolved]

NARRATIVE: CASE EVENT DATE: 20241112
